FAERS Safety Report 4558168-2 (Version None)
Quarter: 2005Q1

REPORT INFORMATION
  Report Type: 
  Country: None (occurrence: None)
  Receive Date: 20050121
  Receipt Date: 20030606
  Transmission Date: 20050727
  Serious: Yes (Hospitalization)
  Sender: FDA-Public Use
  Company Number: PHNR2003AU00976

PATIENT
  Age: 28 Year
  Sex: Male

DRUGS (3)
  1. CLOZARIL [Suspect]
     Indication: SCHIZOPHRENIA
     Route: 048
     Dates: start: 20011201, end: 20010101
  2. CLOZARIL [Suspect]
     Dosage: 12.5-275 MG, DAILY
     Route: 048
     Dates: start: 20021002, end: 20050104
  3. ACETAMINOPHEN [Concomitant]

REACTIONS (8)
  - DIABETIC KETOACIDOSIS [None]
  - HYPERGLYCAEMIA [None]
  - HYPOXIA [None]
  - LETHARGY [None]
  - LIVER FUNCTION TEST ABNORMAL [None]
  - NAUSEA [None]
  - POLYDIPSIA [None]
  - POLYURIA [None]
